FAERS Safety Report 11755085 (Version 1)
Quarter: 2015Q4

REPORT INFORMATION
  Report Type: Spontaneous
  Country: FR (occurrence: FR)
  Receive Date: 20151119
  Receipt Date: 20151119
  Transmission Date: 20160304
  Serious: Yes (Hospitalization, Other)
  Sender: FDA-Public Use
  Company Number: FR-TEVA-610463ISR

PATIENT
  Age: 50 Year
  Sex: Male

DRUGS (5)
  1. PROPRANOLOL [Concomitant]
     Active Substance: PROPRANOLOL\PROPRANOLOL HYDROCHLORIDE
  2. DACLATASVIR. [Interacting]
     Active Substance: DACLATASVIR
     Dosage: DAYS 2, 3, AND 4
  3. FLUINDIONE [Concomitant]
     Active Substance: FLUINDIONE
  4. SOFOSBUVIR [Interacting]
     Active Substance: SOFOSBUVIR
     Dosage: DAYS 2, 3, AND 4
  5. AMIODARONE [Suspect]
     Active Substance: AMIODARONE

REACTIONS (3)
  - Drug interaction [Recovered/Resolved]
  - Sinus node dysfunction [Recovered/Resolved]
  - Bradycardia [Recovered/Resolved]
